FAERS Safety Report 15661748 (Version 4)
Quarter: 2018Q4

REPORT INFORMATION
  Report Type: Spontaneous
  Country: US (occurrence: US)
  Receive Date: 20181127
  Receipt Date: 20181212
  Transmission Date: 20190205
  Serious: Yes (Hospitalization)
  Sender: FDA-Public Use
  Company Number: US-UNITED THERAPEUTICS-UNT-2018-017668

PATIENT
  Age: 60 Year
  Sex: Female
  Weight: 52.15 kg

DRUGS (6)
  1. REMODULIN [Suspect]
     Active Substance: TREPROSTINIL
     Indication: PULMONARY ARTERIAL HYPERTENSION
     Dosage: 0.034 ?G/KG, CONTINUING
     Route: 041
     Dates: start: 20181019
  2. REMODULIN [Suspect]
     Active Substance: TREPROSTINIL
     Dosage: 0.042 ?G/KG, CONTINUING
     Route: 041
  3. REMODULIN [Suspect]
     Active Substance: TREPROSTINIL
     Dosage: 0.04 ?G/KG, CONTINUING
     Route: 041
  4. REMODULIN [Suspect]
     Active Substance: TREPROSTINIL
     Dosage: 0.020 ?G/KG, CONTINUING
     Route: 041
  5. ADEMPAS [Concomitant]
     Active Substance: RIOCIGUAT
     Indication: PRODUCT USED FOR UNKNOWN INDICATION
     Dosage: UNK
     Route: 065
  6. ELIQUIS [Concomitant]
     Active Substance: APIXABAN
     Indication: PRODUCT USED FOR UNKNOWN INDICATION
     Dosage: UNK
     Route: 065

REACTIONS (27)
  - Atrial flutter [Unknown]
  - Swelling face [Unknown]
  - Headache [Unknown]
  - Hypotension [Unknown]
  - Fatigue [Not Recovered/Not Resolved]
  - Back pain [Not Recovered/Not Resolved]
  - Flatulence [Unknown]
  - Weight increased [Unknown]
  - Asthenia [Unknown]
  - Erythema [Unknown]
  - Abdominal tenderness [Unknown]
  - Pain in jaw [Unknown]
  - Diarrhoea [Unknown]
  - Eructation [Unknown]
  - Decreased appetite [Unknown]
  - Gait inability [Unknown]
  - Disturbance in attention [Unknown]
  - Jaw disorder [Unknown]
  - Stress [Unknown]
  - Abdominal distension [Unknown]
  - Tachycardia [Unknown]
  - Dyspnoea [Not Recovered/Not Resolved]
  - Vision blurred [Unknown]
  - Oedema peripheral [Not Recovered/Not Resolved]
  - Peripheral swelling [Not Recovered/Not Resolved]
  - Malaise [Unknown]
  - Pain in extremity [Not Recovered/Not Resolved]

NARRATIVE: CASE EVENT DATE: 2018
